FAERS Safety Report 8293873-6 (Version None)
Quarter: 2012Q2

REPORT INFORMATION
  Report Type: 
  Country: None (occurrence: None)
  Receive Date: 20120413
  Receipt Date: 20120402
  Transmission Date: 20120825
  Serious: Yes (Hospitalization)
  Sender: FDA-Public Use
  Company Number: AUR-APL-2012-01711

PATIENT
  Age: 52 Year
  Sex: Male
  Weight: 92.06 kg

DRUGS (6)
  1. ATORVASTATIN CALCIUM [Suspect]
     Indication: BLOOD CHOLESTEROL INCREASED
     Dates: end: 20120101
  2. CARVEDILOL [Suspect]
     Indication: HYPERTENSION
     Dosage: (6.25 MG,1 D),ORAL
     Route: 048
     Dates: start: 20120101, end: 20120101
  3. METOPROLOL TARTRATE [Suspect]
     Indication: PRODUCT USED FOR UNKNOWN INDICATION
     Dosage: (1 D)
     Dates: end: 20120301
  4. ASPIRIN [Suspect]
     Indication: ANTICOAGULANT THERAPY
     Dosage: (81 MG,1 D) ; (325 MG,1 D)
     Dates: start: 20100101
  5. ASPIRIN [Suspect]
     Indication: ANTICOAGULANT THERAPY
     Dosage: (81 MG,1 D) ; (325 MG,1 D)
     Dates: start: 20030101, end: 20100101
  6. ISOSORBIDE MONONITRATE [Suspect]
     Indication: PRODUCT USED FOR UNKNOWN INDICATION
     Dosage: (30 MG,1 D)
     Dates: start: 20120101, end: 20120101

REACTIONS (5)
  - HYPERHIDROSIS [None]
  - DIZZINESS [None]
  - DYSPEPSIA [None]
  - MALAISE [None]
  - HEADACHE [None]
